FAERS Safety Report 23416317 (Version 2)
Quarter: 2024Q1

REPORT INFORMATION
  Report Type: Spontaneous
  Country: None (occurrence: US)
  Receive Date: 20240118
  Receipt Date: 20240202
  Transmission Date: 20240410
  Serious: Yes (Other)
  Sender: FDA-Public Use
  Company Number: US-Amphastar Pharmaceuticals, Inc.-2151492

PATIENT
  Age: 71 Year
  Sex: Male
  Weight: 100 kg

DRUGS (5)
  1. GLUCAGON [Suspect]
     Active Substance: GLUCAGON\GLUCAGON HYDROCHLORIDE\WATER
     Indication: Diabetes mellitus
     Route: 030
  2. DEVICE [Suspect]
     Active Substance: DEVICE
  3. DEVICE [Suspect]
     Active Substance: DEVICE
  4. DEVICE [Suspect]
     Active Substance: DEVICE
  5. Insulin (unspecified) [Concomitant]

REACTIONS (1)
  - Inappropriate schedule of product administration [Recovered/Resolved]

NARRATIVE: CASE EVENT DATE: 20231220
